FAERS Safety Report 10083980 (Version 1)
Quarter: 2014Q2

REPORT INFORMATION
  Report Type: Report from Study
  Country: DE (occurrence: DE)
  Receive Date: 20140417
  Receipt Date: 20140417
  Transmission Date: 20141212
  Serious: Yes (Other)
  Sender: FDA-Public Use
  Company Number: DE-SA-2014SA046750

PATIENT
  Age: 66 Year
  Sex: Female
  Weight: 84 kg

DRUGS (6)
  1. MULTAQ [Suspect]
     Indication: ATRIAL FIBRILLATION
     Dates: start: 20120709, end: 201210
  2. ALL OTHER THERAPEUTIC PRODUCTS [Concomitant]
     Dates: start: 201006
  3. PLATELET AGGREGATION INHIBITORS [Concomitant]
     Indication: THROMBOSIS PROPHYLAXIS
  4. BLOPRESS PLUS [Concomitant]
  5. L-THYROXIN [Concomitant]
  6. SALBUTAMOL [Concomitant]

REACTIONS (1)
  - Atrial fibrillation [Unknown]
